FAERS Safety Report 16681977 (Version 1)
Quarter: 2019Q3

REPORT INFORMATION
  Report Type: Spontaneous
  Country: US (occurrence: US)
  Receive Date: 20190808
  Receipt Date: 20190808
  Transmission Date: 20191004
  Serious: Yes (Hospitalization)
  Sender: FDA-Public Use
  Company Number: US-HIKMA PHARMACEUTICALS USA INC.-US-H14001-19-04443

PATIENT
  Age: 77 Year
  Sex: Male

DRUGS (15)
  1. FILGRASTIM [Suspect]
     Active Substance: FILGRASTIM
     Indication: ACUTE LYMPHOCYTIC LEUKAEMIA
     Dosage: 5-10 MCG/KG DAILY ON DAY 4, CYCLE 1 AND 3
     Route: 058
  2. PEGFILGRASTIM [Suspect]
     Active Substance: PEGFILGRASTIM
     Indication: ACUTE LYMPHOCYTIC LEUKAEMIA
     Dosage: ON DAY 4, CYCLE 1 AND 3
     Route: 058
  3. CYTARABINE. [Suspect]
     Active Substance: CYTARABINE
     Indication: ACUTE LYMPHOCYTIC LEUKAEMIA
     Dosage: OVER THREE HOURS TWICE A DAY X 4 DOSES ON DAYS 2 AND 3, CYCLE 2
     Route: 042
  4. INOTUZUMAB OZOGAMICIN [Suspect]
     Active Substance: INOTUZUMAB OZOGAMICIN
     Dosage: ON DAYS 2 AND 8 OF CYCLES 2 AND 4
     Route: 042
     Dates: end: 20190422
  5. BLINATUMOMAB [Suspect]
     Active Substance: BLINATUMOMAB
     Indication: ACUTE LYMPHOCYTIC LEUKAEMIA
     Dosage: 9 UG/DAY CYCLIC (CONTINUOUS INTRAVENOUS DAYS 1 TO 4 (FIRST BLINATUMOMAB CYCLE ONLY))
     Route: 042
  6. BLINATUMOMAB [Suspect]
     Active Substance: BLINATUMOMAB
     Dosage: 28 UG/DAY (CONTINUOUS INTRAVENOUS DAYS 4 TO 29 (FIRST BLINATUMOMAB CYCLE ONLY))
     Route: 042
  7. INOTUZUMAB OZOGAMICIN [Suspect]
     Active Substance: INOTUZUMAB OZOGAMICIN
     Indication: ACUTE LYMPHOCYTIC LEUKAEMIA
     Dosage: OVER ONE HOUR ON DAYS 2 AND 8 OF  1 AND 3 (APPROXIMATE)
     Route: 042
     Dates: start: 20190203
  8. VINCRISTINE SULFATE. [Suspect]
     Active Substance: VINCRISTINE SULFATE
     Indication: ACUTE LYMPHOCYTIC LEUKAEMIA
     Dosage: DAY 1 AND DAY 8 (APPROXIMATE), CYCLE 1 AND 3
     Route: 042
  9. CYCLOPHOSPHAMIDE. [Suspect]
     Active Substance: CYCLOPHOSPHAMIDE
     Indication: ACUTE LYMPHOCYTIC LEUKAEMIA
     Dosage: OVER THREE HOURS TWICE A DAY ON DAYS 1 TO 3, CYCLE 1 AND 3
     Route: 042
  10. RITUXIMAB. [Suspect]
     Active Substance: RITUXIMAB
     Indication: ACUTE LYMPHOCYTIC LEUKAEMIA
     Dosage: ON DAY 2 AND DAY 8 OF CYCLES 1 AND 3
     Route: 042
  11. RITUXIMAB. [Suspect]
     Active Substance: RITUXIMAB
     Dosage: ON DAY 2 AND 8 OF CYCLES 2 AND 4
     Route: 042
  12. MESNA. [Suspect]
     Active Substance: MESNA
     Indication: ACUTE LYMPHOCYTIC LEUKAEMIA
     Dosage: DAILY OVER 24 HOURS FOR THREE DAYS ON DAYS 1 TO 3, CYCLE 1 AND 3
     Route: 042
  13. METHOTREXATE SODIUM. [Suspect]
     Active Substance: METHOTREXATE SODIUM
     Indication: ACUTE LYMPHOCYTIC LEUKAEMIA
     Dosage: OVER TWO HORS ON DAY 1
     Route: 042
  14. DEXAMETHASONE. [Suspect]
     Active Substance: DEXAMETHASONE
     Indication: ACUTE LYMPHOCYTIC LEUKAEMIA
     Dosage: FOR 4 DAYS ON DAYS 1 TO 4 AND DAYS 11 TO 14 (APPROXIMATE), CYCLE 1 AND 3
     Route: 042
  15. METHOTREXATE SODIUM. [Suspect]
     Active Substance: METHOTREXATE SODIUM
     Dosage: ONTINUOUS INFUSION OVER 22 HOURS ON DAY 1, CYCLE 2
     Route: 042

REACTIONS (1)
  - Enterocolitis infectious [Recovered/Resolved]

NARRATIVE: CASE EVENT DATE: 20190617
